FAERS Safety Report 8800838 (Version 2)
Quarter: 2015Q1

REPORT INFORMATION
  Report Type: Report from Study
  Country: US (occurrence: US)
  Receive Date: 20120920
  Receipt Date: 20150304
  Transmission Date: 20150721
  Serious: Yes (Death)
  Sender: FDA-Public Use
  Company Number: US-ROCHE-1098258

PATIENT
  Age: 34 Year
  Sex: Female

DRUGS (13)
  1. IMODIUM [Concomitant]
     Active Substance: LOPERAMIDE HYDROCHLORIDE
     Route: 065
  2. DECADRON [Concomitant]
     Active Substance: DEXAMETHASONE
     Route: 042
  3. ALOXI [Concomitant]
     Active Substance: PALONOSETRON HYDROCHLORIDE
     Route: 065
  4. AVASTIN [Suspect]
     Active Substance: BEVACIZUMAB
     Indication: BRAIN NEOPLASM MALIGNANT
     Route: 042
     Dates: start: 20060823
  5. ARANESP [Concomitant]
     Active Substance: DARBEPOETIN ALFA
     Route: 058
  6. GLEEVEC [Concomitant]
     Active Substance: IMATINIB MESYLATE
     Route: 065
  7. HYDROXYUREA. [Concomitant]
     Active Substance: HYDROXYUREA
     Route: 065
  8. DILANTIN [Concomitant]
     Active Substance: PHENYTOIN
     Route: 048
  9. CAMPTOSAR [Concomitant]
     Active Substance: IRINOTECAN HYDROCHLORIDE
     Route: 065
  10. DIAZEPAM. [Concomitant]
     Active Substance: DIAZEPAM
     Route: 065
  11. COMPAZINE [Concomitant]
     Active Substance: PROCHLORPERAZINE MALEATE
     Route: 065
  12. ATROPINE [Concomitant]
     Active Substance: ATROPINE
     Route: 065
  13. FERROUS SULFATE [Concomitant]
     Active Substance: FERROUS SULFATE\FERROUS SULFATE, DRIED
     Route: 065

REACTIONS (15)
  - Nausea [Unknown]
  - Diarrhoea [Unknown]
  - Disease progression [Unknown]
  - Neutropenia [Recovered/Resolved]
  - Productive cough [Unknown]
  - Off label use [Unknown]
  - Vomiting [Unknown]
  - Fatigue [Unknown]
  - Nasal congestion [Unknown]
  - Sinus congestion [Unknown]
  - Epistaxis [Unknown]
  - Death [Fatal]
  - Mobility decreased [Unknown]
  - Muscular weakness [Unknown]
  - Weight decreased [Unknown]

NARRATIVE: CASE EVENT DATE: 20070409
